FAERS Safety Report 5103097-9 (Version None)
Quarter: 2006Q3

REPORT INFORMATION
  Report Type: 
  Country: None (occurrence: None)
  Receive Date: 20060908
  Receipt Date: 20060828
  Transmission Date: 20061208
  Serious: Yes (Death, Other)
  Sender: FDA-Public Use
  Company Number: 2006JP000202

PATIENT
  Age: 67 Year
  Sex: Male
  Weight: 75.5 kg

DRUGS (3)
  1. FUNGUARD (MICAFUNGIN) INJECTION [Suspect]
     Indication: SYSTEMIC CANDIDA
     Dosage: 150 MG, UID/QD, IV DRIP
     Route: 041
     Dates: start: 20050823, end: 20050825
  2. CIPROXAN (CIPROFLOXACIN HYDROCHLORIDE) INJECTION [Concomitant]
  3. MORPHINE HYDROCHLORIDE (MORPHINE HYDROCHLORIDE) INJECTION [Concomitant]

REACTIONS (2)
  - HEPATIC FUNCTION ABNORMAL [None]
  - NEOPLASM MALIGNANT [None]
